FAERS Safety Report 18478479 (Version 2)
Quarter: 2020Q4

REPORT INFORMATION
  Report Type: Spontaneous
  Country: CN (occurrence: CN)
  Receive Date: 20201109
  Receipt Date: 20201124
  Transmission Date: 20210114
  Serious: Yes (Other)
  Sender: FDA-Public Use
  Company Number: CN-LUPIN PHARMACEUTICALS INC.-2020-08398

PATIENT
  Sex: Male

DRUGS (1)
  1. AZITHROMYCIN TABLETS [Suspect]
     Active Substance: AZITHROMYCIN ANHYDROUS
     Indication: GOUT
     Dosage: UNK FOR 8 CONSECUTIVE DAYS
     Route: 065

REACTIONS (3)
  - Liver function test abnormal [Unknown]
  - Product use issue [Unknown]
  - Overdose [Unknown]
